FAERS Safety Report 25020770 (Version 1)
Quarter: 2025Q1

REPORT INFORMATION
  Report Type: Report from Study
  Country: US (occurrence: US)
  Receive Date: 20250227
  Receipt Date: 20250227
  Transmission Date: 20250409
  Serious: Yes (Other)
  Sender: ABBVIE
  Company Number: US-ABBVIE-6087184

PATIENT
  Age: 72 Year
  Sex: Female

DRUGS (2)
  1. SKYRIZI [Suspect]
     Active Substance: RISANKIZUMAB-RZAA
     Indication: Product used for unknown indication
     Route: 058
     Dates: start: 20220922
  2. SKYRIZI [Suspect]
     Active Substance: RISANKIZUMAB-RZAA
     Route: 058
     Dates: start: 20220923

REACTIONS (12)
  - Hepatic failure [Recovered/Resolved]
  - Multiple allergies [Recovered/Resolved]
  - Dry skin [Not Recovered/Not Resolved]
  - Rhinorrhoea [Recovered/Resolved]
  - Skin exfoliation [Recovered/Resolved]
  - Dandruff [Recovered/Resolved]
  - Blood cholesterol increased [Recovering/Resolving]
  - Papule [Recovered/Resolved]
  - Skin discolouration [Recovered/Resolved]
  - Precancerous skin lesion [Recovered/Resolved]
  - Pain [Recovered/Resolved]
  - Fatigue [Recovered/Resolved]

NARRATIVE: CASE EVENT DATE: 20250201
